FAERS Safety Report 10143721 (Version 2)
Quarter: 2016Q4

REPORT INFORMATION
  Report Type: Spontaneous
  Country: IE (occurrence: IE)
  Receive Date: 20140430
  Receipt Date: 20161019
  Transmission Date: 20170206
  Serious: Yes (Other)
  Sender: FDA-Public Use
  Company Number: IE-PFIZER INC-2014114688

PATIENT
  Sex: Male

DRUGS (6)
  1. DOXACAR [Concomitant]
     Dosage: 4 MG, UNK
  2. SUTENT [Suspect]
     Active Substance: SUNITINIB MALATE
     Indication: METASTATIC RENAL CELL CARCINOMA
     Dosage: 37.5 MG, 4/2 AS SCHEDULE
  3. NUSEALS ASPIRN [Concomitant]
     Dosage: 75 MG, UNK
  4. ATORVASTATIN [Concomitant]
     Active Substance: ATORVASTATIN
     Dosage: 10 MG, UNK
  5. NEBOL [Concomitant]
     Dosage: UNK
  6. ISTOLDE [Concomitant]
     Dosage: 10 MG, UNK

REACTIONS (2)
  - Lower respiratory tract infection [Unknown]
  - Stomatitis [Unknown]
